FAERS Safety Report 14859637 (Version 1)
Quarter: 2018Q2

REPORT INFORMATION
  Report Type: Spontaneous
  Country: US (occurrence: US)
  Receive Date: 20180508
  Receipt Date: 20180508
  Transmission Date: 20180711
  Serious: No
  Sender: FDA-Public Use
  Company Number: US-PFIZER INC-2018185855

PATIENT
  Sex: Female

DRUGS (2)
  1. EFFEXOR XR [Suspect]
     Active Substance: VENLAFAXINE HYDROCHLORIDE
     Dosage: 12.5 MG, 2X/DAY
     Dates: end: 201802
  2. SYNTHROID [Concomitant]
     Active Substance: LEVOTHYROXINE SODIUM

REACTIONS (4)
  - Withdrawal syndrome [Unknown]
  - Intentional product use issue [Unknown]
  - Hypothyroidism [Unknown]
  - Depressed mood [Unknown]

NARRATIVE: CASE EVENT DATE: 201804
